FAERS Safety Report 17698373 (Version 9)
Quarter: 2023Q4

REPORT INFORMATION
  Report Type: Spontaneous
  Country: US (occurrence: US)
  Receive Date: 20200423
  Receipt Date: 20231005
  Transmission Date: 20240110
  Serious: No
  Sender: FDA-Public Use
  Company Number: US-PFIZER INC-2020160239

PATIENT
  Age: 57 Year
  Sex: Female
  Weight: 128 kg

DRUGS (7)
  1. PREMARIN [Suspect]
     Active Substance: ESTROGENS, CONJUGATED
     Indication: Hormone replacement therapy
     Dosage: 1 G, DAILY
     Route: 067
  2. PREMARIN [Suspect]
     Active Substance: ESTROGENS, CONJUGATED
     Dosage: 2 OR 3 TIMES A WEEK SOMETIMES EVERY DAY DEPENDING ON HOW MUCH NEEDED
  3. PREMARIN [Suspect]
     Active Substance: ESTROGENS, CONJUGATED
     Dosage: 1 G, DAILY
  4. PREMARIN [Suspect]
     Active Substance: ESTROGENS, CONJUGATED
     Dosage: 0.625 ONCE DAILY
     Route: 067
  5. HYDROCHLOROTHIAZIDE [Concomitant]
     Active Substance: HYDROCHLOROTHIAZIDE
     Indication: Blood pressure measurement
     Dosage: UNK
  6. LANSOPRAZOLE [Concomitant]
     Active Substance: LANSOPRAZOLE
     Indication: Gastrooesophageal reflux disease
     Dosage: UNK
     Route: 048
  7. LEVOXYL [Concomitant]
     Active Substance: LEVOTHYROXINE SODIUM
     Indication: Hypothyroidism
     Dosage: UNK
     Route: 048

REACTIONS (5)
  - Illness [Unknown]
  - Headache [Unknown]
  - Loss of personal independence in daily activities [Unknown]
  - Product prescribing error [Unknown]
  - Off label use [Unknown]
